FAERS Safety Report 20742187 (Version 1)
Quarter: 2022Q2

REPORT INFORMATION
  Report Type: Other
  Country: None (occurrence: DE)
  Receive Date: 20220423
  Receipt Date: 20220423
  Transmission Date: 20220721
  Serious: Yes (Hospitalization)
  Sender: FDA-Public Use
  Company Number: DE-B.Braun Medical Inc.-2128093

PATIENT
  Age: 58 Year
  Sex: Male

DRUGS (1)
  1. MEROPENEM\SODIUM CHLORIDE [Suspect]
     Active Substance: MEROPENEM\SODIUM CHLORIDE

REACTIONS (2)
  - Drug ineffective [Unknown]
  - Neurological symptom [Unknown]
